FAERS Safety Report 15050215 (Version 2)
Quarter: 2019Q3

REPORT INFORMATION
  Report Type: Report from Study
  Country: RU (occurrence: RU)
  Receive Date: 20180622
  Receipt Date: 20190702
  Transmission Date: 20191004
  Serious: Yes (Hospitalization)
  Sender: FDA-Public Use
  Company Number: RU-TESARO, INC-RU-2018TSO02429

PATIENT

DRUGS (35)
  1. NIRAPARIB [Suspect]
     Active Substance: NIRAPARIB
     Indication: OVARIAN CANCER
     Dosage: 300 MG, QD
     Route: 048
     Dates: start: 20180322, end: 20180418
  2. PREDNISOLONE. [Concomitant]
     Active Substance: PREDNISOLONE
     Indication: NEUTROPENIA
     Dosage: 60 MG, QD
     Route: 042
     Dates: start: 20180417, end: 20180420
  3. SODIUM CHLORIDE. [Concomitant]
     Active Substance: SODIUM CHLORIDE
     Indication: THROMBOCYTOPENIA
     Dosage: 50 ML, SINGLE
     Dates: start: 20180417, end: 20180417
  4. INDAPAMID [Concomitant]
     Active Substance: INDAPAMIDE
     Indication: BLOOD PRESSURE MANAGEMENT
     Dosage: 5 MG, SINGLE
     Route: 048
     Dates: start: 20180419, end: 20180419
  5. ABROXOL [Concomitant]
     Indication: COUGH
     Dosage: 30 MG, TID
     Route: 048
     Dates: start: 20180514, end: 20190529
  6. SODIUM CHLORIDE. [Concomitant]
     Active Substance: SODIUM CHLORIDE
     Dosage: 250 ML, QD
     Route: 042
     Dates: start: 20180426, end: 20180426
  7. ACILOC [Concomitant]
     Indication: GASTRITIS PROPHYLAXIS
  8. LASOLVAN [Concomitant]
     Active Substance: AMBROXOL HYDROCHLORIDE
     Indication: ACUTE RESPIRATORY DISTRESS SYNDROME
     Dosage: UNK, PRN
     Route: 055
     Dates: start: 20180429, end: 20180510
  9. ENALAPRIL [Concomitant]
     Active Substance: ENALAPRIL
     Indication: BLOOD PRESSURE MANAGEMENT
     Dosage: 5 MG, BID
     Route: 048
     Dates: start: 20180417, end: 20180418
  10. FERRUM LEK [FERRIC HYDROXIDE POLYMALTOSE COMPLEX] [Concomitant]
     Active Substance: IRON POLYMALTOSE
     Indication: ANAEMIA
     Dosage: 1 DF, BID
     Route: 048
     Dates: start: 20180417, end: 20180503
  11. PREDNISOLONE. [Concomitant]
     Active Substance: PREDNISOLONE
     Dosage: 30 MG, QD
     Route: 042
     Dates: start: 20180421, end: 20180425
  12. ACILOC [Concomitant]
     Indication: ALLERGY PROPHYLAXIS
     Dosage: 50 MG, QD
     Route: 042
     Dates: start: 20180417, end: 20180425
  13. CAPTOPRIL. [Concomitant]
     Active Substance: CAPTOPRIL
     Indication: BLOOD PRESSURE MANAGEMENT
     Dosage: 12.5 MG, PRN
     Route: 048
     Dates: start: 20180417, end: 20180420
  14. HEPTOR [Concomitant]
     Indication: ASPARTATE AMINOTRANSFERASE INCREASED
  15. INDAPAMID [Concomitant]
     Active Substance: INDAPAMIDE
     Dosage: 1.5 MG, QD
     Route: 048
     Dates: start: 20180419, end: 20180504
  16. ENALAPRIL [Concomitant]
     Active Substance: ENALAPRIL
     Indication: ANTIBIOTIC PROPHYLAXIS
     Dosage: 2.5 MG, BID
     Route: 048
     Dates: start: 20180418, end: 20180419
  17. AMOKSIKLAV [Concomitant]
     Active Substance: AMOXICILLIN\CLAVULANATE POTASSIUM
     Indication: RESPIRATORY DISORDER
     Dosage: 625 MG, BID
     Route: 048
     Dates: start: 20180505, end: 20180509
  18. NIRAPARIB [Suspect]
     Active Substance: NIRAPARIB
     Dosage: 200 MG, UNK
     Route: 048
     Dates: start: 20180514, end: 20180614
  19. VICASOL [Concomitant]
     Indication: THROMBOCYTOPENIA
     Dosage: 15 MG, BID
     Route: 048
     Dates: start: 20180417, end: 20180504
  20. FOLIC ACID. [Concomitant]
     Active Substance: FOLIC ACID
     Indication: ANAEMIA
     Dosage: 1 MG, BID
     Route: 048
     Dates: start: 20180417, end: 20180503
  21. BERODUAL INHALATION SOLUTION [Concomitant]
     Indication: PNEUMONIA FUNGAL
     Dosage: UNK, PRN
     Route: 055
     Dates: start: 20180429, end: 20190504
  22. ENALAPRIL [Concomitant]
     Active Substance: ENALAPRIL
     Dosage: 5 MG, BID
     Route: 048
     Dates: start: 20180419, end: 20180504
  23. ABROXOL [Concomitant]
     Indication: INTERSTITIAL LUNG DISEASE
  24. NIRAPARIB [Suspect]
     Active Substance: NIRAPARIB
     Dosage: 100 MG, UNK
     Route: 048
     Dates: start: 20180530
  25. OMEPRAZOLE. [Concomitant]
     Active Substance: OMEPRAZOLE
     Indication: GASTRITIS PROPHYLAXIS
     Dosage: 20 MG, BID
     Route: 048
     Dates: start: 20180417, end: 20180504
  26. PREDNISOLONE. [Concomitant]
     Active Substance: PREDNISOLONE
     Indication: THROMBOCYTOPENIA
     Dosage: 30 MG, QD
     Route: 042
     Dates: start: 20180417, end: 20180417
  27. PREDNISOLONE. [Concomitant]
     Active Substance: PREDNISOLONE
     Dosage: 60 MG, QD
     Route: 042
     Dates: start: 20180426, end: 20180428
  28. FLUCONAZOLE. [Concomitant]
     Active Substance: FLUCONAZOLE
     Indication: RESPIRATORY DISORDER
     Dosage: 150 MG, SINGLE
     Route: 048
     Dates: start: 20180505, end: 20180505
  29. DICYNONE [Concomitant]
     Active Substance: ETHAMSYLATE
     Indication: THROMBOCYTOPENIA
     Dosage: 250 MG, TID
     Route: 048
     Dates: start: 20180417, end: 20180504
  30. TRANEXAM [Concomitant]
     Active Substance: TRANEXAMIC ACID
     Indication: THROMBOCYTOPENIA
     Dosage: 500 MG, BID
     Route: 042
     Dates: start: 20180417, end: 20180424
  31. SODIUM CHLORIDE. [Concomitant]
     Active Substance: SODIUM CHLORIDE
     Indication: HYPERSENSITIVITY
     Dosage: 100 ML, QD
     Route: 042
     Dates: start: 20180417, end: 20180420
  32. SODIUM CHLORIDE. [Concomitant]
     Active Substance: SODIUM CHLORIDE
     Indication: GASTRITIS PROPHYLAXIS
     Dosage: 0.8 % (100 ML), QD
     Route: 042
     Dates: start: 20180417, end: 20180425
  33. SODIUM CHLORIDE. [Concomitant]
     Active Substance: SODIUM CHLORIDE
     Indication: NEUTROPENIA
     Dosage: 100 ML, QD
     Route: 048
     Dates: start: 20180421, end: 20180425
  34. HEPTOR [Concomitant]
     Indication: ALANINE AMINOTRANSFERASE INCREASED
     Dosage: 400 MG, BID
     Route: 048
     Dates: start: 20180423, end: 20180504
  35. FILGRASTIM [Concomitant]
     Active Substance: FILGRASTIM
     Indication: NEUTROPENIA
     Dosage: 300 ?G, SINGLE
     Route: 058
     Dates: start: 20180425, end: 20180425

REACTIONS (1)
  - Pneumonia fungal [Recovered/Resolved]

NARRATIVE: CASE EVENT DATE: 20180516
